FAERS Safety Report 7743644-1 (Version None)
Quarter: 2011Q3

REPORT INFORMATION
  Report Type: 
  Country: None (occurrence: None)
  Receive Date: 20110912
  Receipt Date: 20110830
  Transmission Date: 20111222
  Serious: Yes (Hospitalization, Disabling, Other)
  Sender: FDA-Public Use
  Company Number: US-MERCK-1105USA02541

PATIENT
  Age: 55 Year
  Sex: Male
  Weight: 87 kg

DRUGS (4)
  1. ACTONEL [Concomitant]
     Indication: OSTEOPOROSIS PROPHYLAXIS
     Route: 065
     Dates: start: 20020101, end: 20050101
  2. VITAMINS (UNSPECIFIED) [Concomitant]
     Route: 065
  3. FOSAMAX [Suspect]
     Indication: OSTEOPOROSIS
     Route: 048
     Dates: start: 20050101, end: 20090401
  4. FOSAMAX [Suspect]
     Indication: OSTEOPOROSIS PROPHYLAXIS
     Route: 048
     Dates: start: 20050101, end: 20090401

REACTIONS (27)
  - SPINAL DISORDER [None]
  - FLATULENCE [None]
  - SPINAL CORD COMPRESSION [None]
  - ABDOMINAL PAIN [None]
  - BENIGN NEOPLASM [None]
  - MYELOMALACIA [None]
  - KYPHOSIS [None]
  - COUGH [None]
  - LOW TURNOVER OSTEOPATHY [None]
  - TIBIA FRACTURE [None]
  - FAECES DISCOLOURED [None]
  - JOINT SWELLING [None]
  - JOINT INJURY [None]
  - BURSITIS [None]
  - OSTEOPOROSIS [None]
  - BACK PAIN [None]
  - MUSCLE SPASMS [None]
  - FIBULA FRACTURE [None]
  - DIARRHOEA [None]
  - FEMUR FRACTURE [None]
  - IRRITABLE BOWEL SYNDROME [None]
  - PARAESTHESIA [None]
  - INCONTINENCE [None]
  - STRESS FRACTURE [None]
  - ARTHRODESIS [None]
  - CELLULITIS [None]
  - CONSTIPATION [None]
